FAERS Safety Report 8353072-6 (Version None)
Quarter: 2012Q2

REPORT INFORMATION
  Report Type: 
  Country: None (occurrence: None)
  Receive Date: 20120511
  Receipt Date: 20120504
  Transmission Date: 20120825
  Serious: Yes (Other)
  Sender: FDA-Public Use
  Company Number: US-ASTRAZENECA-2012SE01047

PATIENT
  Age: 48 Year
  Sex: Female

DRUGS (7)
  1. VASERETIC [Concomitant]
     Dosage: 10/25
  2. VALIUM [Concomitant]
     Dosage: 5
  3. INDERAL [Concomitant]
     Dosage: 18
  4. LORTAB [Concomitant]
     Dosage: 10
  5. PRILOSEC [Suspect]
     Route: 048
  6. NEXIUM [Suspect]
     Route: 048
  7. PHENERGAN [Concomitant]
     Dosage: 25

REACTIONS (5)
  - DRUG INEFFECTIVE [None]
  - GASTROOESOPHAGEAL REFLUX DISEASE [None]
  - BLOOD DISORDER [None]
  - INTENTIONAL DRUG MISUSE [None]
  - OESOPHAGEAL PERFORATION [None]
